FAERS Safety Report 9667595 (Version 1)
Quarter: 2013Q4

REPORT INFORMATION
  Report Type: Spontaneous
  Country: US (occurrence: US)
  Receive Date: 20131104
  Receipt Date: 20131104
  Transmission Date: 20140711
  Serious: No
  Sender: FDA-Public Use
  Company Number: US-BIOGENIDEC-2013BI093091

PATIENT
  Age: 50 Year
  Sex: Female

DRUGS (6)
  1. TECFIDERA [Suspect]
     Indication: MULTIPLE SCLEROSIS
     Route: 048
     Dates: start: 20130909
  2. PRISTIQ [Concomitant]
  3. CELEBREX [Concomitant]
  4. ESTRADIOL [Concomitant]
  5. AMITRIPTYLINE [Concomitant]
  6. MS CONTIN [Concomitant]

REACTIONS (3)
  - Diarrhoea [Recovered/Resolved]
  - Rash [Recovered/Resolved]
  - Nausea [Recovered/Resolved]
